FAERS Safety Report 8896422 (Version 1)
Quarter: 2012Q4

REPORT INFORMATION
  Report Type: Spontaneous
  Country: US (occurrence: None)
  Receive Date: 20121107
  Receipt Date: 20121107
  Transmission Date: 20130627
  Serious: Yes (Other)
  Sender: FDA-Public Use
  Company Number: None

PATIENT
  Age: 13 Year
  Sex: Male
  Weight: 50.8 kg

DRUGS (1)
  1. ADDERALL XR [Suspect]
     Indication: ADHD
     Dosage: 20 MG PO AM
     Route: 048
     Dates: start: 20120823

REACTIONS (4)
  - Treatment failure [None]
  - Product substitution issue [None]
  - Disturbance in attention [None]
  - Educational problem [None]
